FAERS Safety Report 6805017-5 (Version None)
Quarter: 2010Q2

REPORT INFORMATION
  Report Type: 
  Country: None (occurrence: None)
  Receive Date: 20100628
  Receipt Date: 20070731
  Transmission Date: 20101027
  Serious: No
  Sender: FDA-Public Use
  Company Number: US-PFIZER INC-2007063642

PATIENT
  Sex: Female
  Weight: 68.2 kg

DRUGS (9)
  1. GEODON [Suspect]
     Indication: HALLUCINATION, AUDITORY
     Dates: start: 20070701, end: 20070726
  2. ATENOLOL [Concomitant]
  3. CLONIDINE [Concomitant]
  4. LEVOTHROID [Concomitant]
  5. BUSPAR [Concomitant]
  6. SODIUM CHLORIDE [Concomitant]
  7. ACTONEL [Concomitant]
  8. PREDNISONE [Concomitant]
  9. FELODIPINE [Concomitant]

REACTIONS (5)
  - DECREASED APPETITE [None]
  - FATIGUE [None]
  - LETHARGY [None]
  - SEDATION [None]
  - UNEVALUABLE EVENT [None]
